FAERS Safety Report 5483903-9 (Version None)
Quarter: 2007Q4

REPORT INFORMATION
  Report Type: 
  Country: None (occurrence: None)
  Receive Date: 20071009
  Receipt Date: 20070927
  Transmission Date: 20080405
  Serious: Yes (Hospitalization)
  Sender: FDA-Public Use
  Company Number: 15853

PATIENT
  Age: 82 Year
  Sex: Female

DRUGS (16)
  1. CYTARABINE [Suspect]
     Indication: ACUTE MYELOID LEUKAEMIA
     Dosage: 20 MG/M2 QD; SC
     Route: 058
     Dates: start: 20061024
  2. SERTRALINE [Concomitant]
  3. VITAMIN B-12 [Concomitant]
  4. ERGOCALCIFEROL [Concomitant]
  5. GABAPENTIN [Concomitant]
  6. MONOPRIL [Concomitant]
  7. LIPITOR [Concomitant]
  8. FOSAMAX [Concomitant]
  9. THIAMINE HCL [Concomitant]
  10. BETAGAN [Concomitant]
  11. GLUCOSAMINE [Concomitant]
  12. MAGNESIUM SULFATE [Concomitant]
  13. ALLOPURINOL [Concomitant]
  14. METAMUCIL [Concomitant]
  15. IMODIUM [Concomitant]
  16. MEGAFOL [Concomitant]

REACTIONS (5)
  - ABASIA [None]
  - CHONDROCALCINOSIS [None]
  - CHONDROCALCINOSIS PYROPHOSPHATE [None]
  - JOINT EFFUSION [None]
  - PAIN IN EXTREMITY [None]
